FAERS Safety Report 8507180 (Version 3)
Quarter: 2012Q4

REPORT INFORMATION
  Report Type: 
  Country: US (occurrence: US)
  Receive Date: 20120412
  Receipt Date: 20121002
  Transmission Date: 20130627
  Serious: No
  Sender: FDA-Public Use
  Company Number: US-ASTRAZENECA-2011SE59505

PATIENT
  Age: 55 Year
  Sex: Female

DRUGS (3)
  1. NEXIUM [Suspect]
     Route: 048
  2. ZANTAC [Concomitant]
  3. METFORMIN [Concomitant]

REACTIONS (13)
  - Regurgitation [Unknown]
  - Hyperchlorhydria [Unknown]
  - Aphagia [Unknown]
  - Dysphagia [Unknown]
  - Malaise [Unknown]
  - Gastrooesophageal reflux disease [Unknown]
  - Gastric disorder [Unknown]
  - Headache [Unknown]
  - Nausea [Unknown]
  - Abdominal pain upper [Unknown]
  - Dysgeusia [Unknown]
  - Drug dose omission [Unknown]
  - Drug ineffective [Unknown]
